FAERS Safety Report 17911828 (Version 1)
Quarter: 2020Q2

REPORT INFORMATION
  Report Type: Spontaneous
  Country: US (occurrence: US)
  Receive Date: 20200618
  Receipt Date: 20200618
  Transmission Date: 20200714
  Serious: Yes (Hospitalization)
  Sender: FDA-Public Use
  Company Number: None

PATIENT
  Sex: Female

DRUGS (8)
  1. LOSARTAN. [Concomitant]
     Active Substance: LOSARTAN
  2. FELODIPINE. [Concomitant]
     Active Substance: FELODIPINE
  3. ALLOPURINOL. [Concomitant]
     Active Substance: ALLOPURINOL
  4. CARVEDILOL. [Concomitant]
     Active Substance: CARVEDILOL
  5. LANTUS [Concomitant]
     Active Substance: INSULIN GLARGINE
  6. TASIGNA [Suspect]
     Active Substance: NILOTINIB
     Indication: CHRONIC MYELOID LEUKAEMIA
     Route: 048
     Dates: start: 20150606
  7. LEVOTHYROXIN [Concomitant]
     Active Substance: LEVOTHYROXINE
  8. HUMALOG [Concomitant]
     Active Substance: INSULIN LISPRO

REACTIONS (2)
  - Fatigue [None]
  - Aphasia [None]
